FAERS Safety Report 7812569-5 (Version None)
Quarter: 2011Q4

REPORT INFORMATION
  Report Type: 
  Country: None (occurrence: None)
  Receive Date: 20111013
  Receipt Date: 20111003
  Transmission Date: 20120403
  Serious: Yes (Hospitalization, Other)
  Sender: FDA-Public Use
  Company Number: US-BAYER-2010-006130

PATIENT
  Age: 47 Year
  Sex: Female
  Weight: 101.13 kg

DRUGS (3)
  1. YASMIN [Suspect]
     Indication: CONTRACEPTION
     Dosage: UNK
     Dates: start: 20021101, end: 20080601
  2. ADIPEX [Concomitant]
     Dosage: UNK
     Dates: start: 20000701, end: 20100401
  3. DIOVAN [Concomitant]
     Indication: HYPERTENSION
     Dosage: UNK
     Dates: start: 20060201, end: 20071201

REACTIONS (6)
  - PAIN [None]
  - ANXIETY [None]
  - CHOLELITHIASIS [None]
  - FEAR [None]
  - CHOLECYSTITIS CHRONIC [None]
  - ABDOMINAL PAIN [None]
